FAERS Safety Report 5970225-2 (Version None)
Quarter: 2008Q4

REPORT INFORMATION
  Report Type: 
  Country: None (occurrence: None)
  Receive Date: 20081126
  Receipt Date: 20081017
  Transmission Date: 20090506
  Serious: No
  Sender: FDA-Public Use
  Company Number: US-ABBOTT-08P-163-0482569-00

PATIENT
  Sex: Female
  Weight: 83.536 kg

DRUGS (8)
  1. SIMCOR [Suspect]
     Indication: CORONARY ARTERY DISEASE
     Dosage: 1 - 500/20 MG TABLET EVERY NIGHT
     Dates: start: 20080901
  2. SIMCOR [Suspect]
     Indication: BLOOD CHOLESTEROL
  3. ACETYLSALICYLIC ACID SRT [Concomitant]
     Indication: DRUG USE FOR UNKNOWN INDICATION
  4. ASPIRIN [Concomitant]
     Indication: FLUSHING
  5. AMLODIPINE MALEATE/ BENAZEPRIL HYDROCHLORIDE [Concomitant]
     Indication: BLOOD PRESSURE
     Dosage: 10/20 MG
  6. CLOPIDOGREL [Concomitant]
     Indication: CORONARY ARTERIAL STENT INSERTION
  7. ARNICA MONTANA [Concomitant]
     Indication: MUSCLE SPASMS
  8. JANUMET [Concomitant]
     Indication: DRUG USE FOR UNKNOWN INDICATION
     Dosage: 50/500

REACTIONS (3)
  - DYSPEPSIA [None]
  - FLUSHING [None]
  - FREQUENT BOWEL MOVEMENTS [None]
